FAERS Safety Report 8191256-0 (Version None)
Quarter: 2012Q1

REPORT INFORMATION
  Report Type: 
  Country: None (occurrence: None)
  Receive Date: 20120307
  Receipt Date: 20120224
  Transmission Date: 20120608
  Serious: Yes (Life-Threatening)
  Sender: FDA-Public Use
  Company Number: US-MYLANLABS-2012S1001217

PATIENT
  Age: 24 Year
  Sex: Female
  Weight: 123.83 kg

DRUGS (6)
  1. EMSAM [Suspect]
     Indication: DEPRESSION
     Dosage: CHANGE Q24HR
     Route: 062
     Dates: start: 20111125, end: 20120117
  2. ALBUTEROL [Concomitant]
     Indication: DYSPNOEA
  3. NEURONTIN [Concomitant]
     Route: 048
  4. HALDOL [Concomitant]
     Route: 048
  5. PRILOSEC [Concomitant]
     Route: 048
  6. CLARITIN /00917501/ [Concomitant]
     Route: 048

REACTIONS (2)
  - SUICIDE ATTEMPT [None]
  - INTENTIONAL DRUG MISUSE [None]
